FAERS Safety Report 6837796-5 (Version None)
Quarter: 2010Q3

REPORT INFORMATION
  Report Type: 
  Country: None (occurrence: None)
  Receive Date: 20100713
  Receipt Date: 20100701
  Transmission Date: 20110219
  Serious: Yes (Death, Hospitalization)
  Sender: FDA-Public Use
  Company Number: JP-AMGEN-US408183

PATIENT
  Sex: Female
  Weight: 50 kg

DRUGS (4)
  1. ENBREL [Suspect]
     Indication: RHEUMATOID ARTHRITIS
     Route: 058
     Dates: start: 20100122, end: 20100226
  2. RHEUMATREX [Suspect]
     Indication: RHEUMATOID ARTHRITIS
     Route: 048
     Dates: start: 20100122, end: 20100126
  3. LOXONIN [Concomitant]
     Indication: PAIN
     Route: 048
     Dates: start: 20100122, end: 20100126
  4. GASTER [Concomitant]
     Route: 048
     Dates: start: 20100122, end: 20100126

REACTIONS (2)
  - CONCOMITANT DISEASE AGGRAVATED [None]
  - INTERSTITIAL LUNG DISEASE [None]
